FAERS Safety Report 7010478-5 (Version None)
Quarter: 2010Q3

REPORT INFORMATION
  Report Type: 
  Country: None (occurrence: None)
  Receive Date: 20100923
  Receipt Date: 20100914
  Transmission Date: 20110219
  Serious: Yes (Death, Hospitalization, Other)
  Sender: FDA-Public Use
  Company Number: PHEH2005US02736

PATIENT
  Sex: Male

DRUGS (18)
  1. ZOMETA [Suspect]
     Indication: PROSTATE CANCER METASTATIC
     Dosage: 4 MG, Q 4 WEEKS
     Dates: start: 20030123, end: 20050216
  2. TAXOL [Concomitant]
     Dosage: UNK, UNK
     Dates: start: 20030101
  3. ZOLADEX [Concomitant]
     Dosage: UNK, UNK
  4. CASODEX [Concomitant]
     Dosage: UNK, UNK
  5. PRINIVIL [Concomitant]
  6. ZOCOR [Concomitant]
  7. SELENIUM [Concomitant]
  8. MULTI-VITAMINS [Concomitant]
  9. CALCIUM [Concomitant]
  10. COUMADIN [Concomitant]
  11. EMCYT [Concomitant]
  12. PROPRANOLOL [Concomitant]
  13. ACETYLSALICYLIC ACID [Concomitant]
     Dosage: 81 MG, QD
  14. LASIX [Concomitant]
  15. NAPROSYN [Concomitant]
  16. COMPAZINE [Concomitant]
     Dosage: UNK, PRN
  17. PROCRIT [Concomitant]
     Indication: ANAEMIA
  18. LUPRON [Concomitant]

REACTIONS (30)
  - ABDOMINAL PAIN UPPER [None]
  - ASTHMA [None]
  - BONE DISORDER [None]
  - BURSITIS INFECTIVE [None]
  - DEATH [None]
  - DEBRIDEMENT [None]
  - DEEP VEIN THROMBOSIS [None]
  - DENTAL CARE [None]
  - DYSPNOEA [None]
  - HEPATIC NEOPLASM MALIGNANT [None]
  - HYPOXIA [None]
  - IMPAIRED HEALING [None]
  - IRON DEFICIENCY ANAEMIA [None]
  - LEFT VENTRICULAR DYSFUNCTION [None]
  - LUNG DISORDER [None]
  - MITRAL VALVE DISEASE [None]
  - NAUSEA [None]
  - NEUROPATHY PERIPHERAL [None]
  - ONYCHOMYCOSIS [None]
  - OSTEOARTHRITIS [None]
  - OSTEONECROSIS OF JAW [None]
  - PAIN IN EXTREMITY [None]
  - PAIN IN JAW [None]
  - PLEURAL EFFUSION [None]
  - PNEUMONIA [None]
  - RIB FRACTURE [None]
  - SPINAL COMPRESSION FRACTURE [None]
  - TOOTH EXTRACTION [None]
  - TRICUSPID VALVE DISEASE [None]
  - VOMITING [None]
